FAERS Safety Report 7018288-X (Version None)
Quarter: 2010Q3

REPORT INFORMATION
  Report Type: 
  Country: None (occurrence: None)
  Receive Date: 20100923
  Receipt Date: 20100916
  Transmission Date: 20110219
  Serious: Yes (Life-Threatening, Hospitalization)
  Sender: FDA-Public Use
  Company Number: 2008JP005720

PATIENT
  Age: 32 Year
  Sex: Female
  Weight: 47 kg

DRUGS (11)
  1. TACROLIMUS [Suspect]
     Indication: LUPUS NEPHRITIS
     Dosage: 3 MG, /D, ORAL ; 3 MG, /D, ORAL ; 2.5 MG, /D, ORAL
     Route: 048
     Dates: start: 20070911, end: 20080504
  2. TACROLIMUS [Suspect]
     Indication: LUPUS NEPHRITIS
     Dosage: 3 MG, /D, ORAL ; 3 MG, /D, ORAL ; 2.5 MG, /D, ORAL
     Route: 048
     Dates: start: 20080710, end: 20100607
  3. TACROLIMUS [Suspect]
     Indication: LUPUS NEPHRITIS
     Dosage: 3 MG, /D, ORAL ; 3 MG, /D, ORAL ; 2.5 MG, /D, ORAL
     Route: 048
     Dates: start: 20100608
  4. PREDNISOLONE [Suspect]
     Indication: LUPUS NEPHRITIS
     Dosage: SEE IMAGE
     Route: 048
     Dates: end: 20081109
  5. PREDNISOLONE [Suspect]
     Indication: LUPUS NEPHRITIS
     Dosage: SEE IMAGE
     Route: 048
     Dates: start: 20081110, end: 20090130
  6. PREDNISOLONE [Suspect]
     Indication: LUPUS NEPHRITIS
     Dosage: SEE IMAGE
     Route: 048
     Dates: start: 20090131, end: 20090416
  7. PREDNISOLONE [Suspect]
     Indication: LUPUS NEPHRITIS
     Dosage: SEE IMAGE
     Route: 048
     Dates: start: 20090417, end: 20100106
  8. PREDNISOLONE [Suspect]
     Indication: LUPUS NEPHRITIS
     Dosage: SEE IMAGE
     Route: 048
     Dates: start: 20100107, end: 20100303
  9. PREDNISOLONE [Suspect]
     Indication: LUPUS NEPHRITIS
     Dosage: SEE IMAGE
     Route: 048
     Dates: start: 20100304
  10. EPLERENONE [Suspect]
     Indication: GENERALISED OEDEMA
     Dosage: 25 MG, /D, ORAL
     Route: 048
     Dates: start: 20080723, end: 20080807
  11. DEPAKENE [Concomitant]

REACTIONS (12)
  - BLOOD URIC ACID INCREASED [None]
  - DNA ANTIBODY POSITIVE [None]
  - DRUG LEVEL INCREASED [None]
  - GASTROENTERITIS SALMONELLA [None]
  - GENERALISED OEDEMA [None]
  - GRAND MAL CONVULSION [None]
  - HAEMATOCRIT DECREASED [None]
  - HAEMORRHAGE [None]
  - HYPONATRAEMIA [None]
  - PNEUMATOSIS INTESTINALIS [None]
  - PNEUMONIA CHLAMYDIAL [None]
  - TREATMENT NONCOMPLIANCE [None]
